FAERS Safety Report 19057113 (Version 1)
Quarter: 2021Q1

REPORT INFORMATION
  Report Type: Spontaneous
  Country: US (occurrence: US)
  Receive Date: 20210324
  Receipt Date: 20210324
  Transmission Date: 20210420
  Serious: No
  Sender: FDA-Public Use
  Company Number: US-HISAMITSU-2020-US-009527

PATIENT
  Age: 71 Year
  Sex: Female
  Weight: 65.32 kg

DRUGS (4)
  1. MULTIVITAMIN [Concomitant]
     Active Substance: VITAMINS
  2. SALONPAS PAIN RELIEF [Suspect]
     Active Substance: MENTHOL\METHYL SALICYLATE
     Indication: BACK PAIN
     Dosage: APPLIED ONE PATCH ON LUMBAR AREA
     Route: 061
     Dates: start: 20200508, end: 20200508
  3. GLUCOSAMINE [Concomitant]
     Active Substance: GLUCOSAMINE
  4. FISH OIL [Concomitant]
     Active Substance: FISH OIL

REACTIONS (1)
  - Application site pain [Not Recovered/Not Resolved]

NARRATIVE: CASE EVENT DATE: 20200508
